FAERS Safety Report 12073604 (Version 4)
Quarter: 2016Q1

REPORT INFORMATION
  Report Type: Spontaneous
  Country: JP (occurrence: JP)
  Receive Date: 20160212
  Receipt Date: 20160331
  Transmission Date: 20160526
  Serious: Yes (Hospitalization, Other)
  Sender: FDA-Public Use
  Company Number: JP-PFIZER INC-2016079330

PATIENT
  Age: 75 Year
  Sex: Female
  Weight: 57.1 kg

DRUGS (6)
  1. AMLODIPINE [Concomitant]
     Active Substance: AMLODIPINE BESYLATE
  2. XALKORI [Suspect]
     Active Substance: CRIZOTINIB
     Dosage: 200 MG, DAILY
     Dates: start: 20160301, end: 20160309
  3. OLMETEC [Concomitant]
     Active Substance: OLMESARTAN MEDOXOMIL
  4. GLIMEPIRIDE. [Concomitant]
     Active Substance: GLIMEPIRIDE
  5. EQUA [Concomitant]
     Active Substance: VILDAGLIPTIN
  6. XALKORI [Suspect]
     Active Substance: CRIZOTINIB
     Indication: NON-SMALL CELL LUNG CANCER
     Dosage: 500 MG, DAILY
     Route: 048
     Dates: start: 20160202

REACTIONS (11)
  - Visual field defect [Unknown]
  - Hypoalbuminaemia [Recovering/Resolving]
  - Pneumonia [Not Recovered/Not Resolved]
  - Condition aggravated [Unknown]
  - C-reactive protein increased [Unknown]
  - Nausea [Unknown]
  - Pleural effusion [Unknown]
  - Pyrexia [Unknown]
  - Renal impairment [Recovering/Resolving]
  - Blood creatinine increased [Recovered/Resolved]
  - Blood glucose increased [Recovered/Resolved]

NARRATIVE: CASE EVENT DATE: 20160208
